FAERS Safety Report 5091994-2 (Version None)
Quarter: 2006Q3

REPORT INFORMATION
  Report Type: 
  Country: None (occurrence: None)
  Receive Date: 20060825
  Receipt Date: 20060809
  Transmission Date: 20061208
  Serious: Yes (Other)
  Sender: FDA-Public Use
  Company Number: CA200608002914

PATIENT
  Sex: Male

DRUGS (4)
  1. CIALIS [Suspect]
     Indication: ERECTILE DYSFUNCTION
  2. LIPITOR [Concomitant]
  3. RABEPRAZOLE SODIUM [Concomitant]
  4. PROPAFEN (PROPAFENONE) [Concomitant]

REACTIONS (1)
  - HEPATITIS [None]
